FAERS Safety Report 17650579 (Version 5)
Quarter: 2020Q2

REPORT INFORMATION
  Report Type: Spontaneous
  Country: IE (occurrence: IE)
  Receive Date: 20200409
  Receipt Date: 20200602
  Transmission Date: 20200713
  Serious: Yes (Hospitalization, Other)
  Sender: FDA-Public Use
  Company Number: IE-BAYER-2020-057155

PATIENT
  Age: 28 Year
  Sex: Female

DRUGS (5)
  1. KYLEENA [Suspect]
     Active Substance: LEVONORGESTREL
     Indication: PROGESTERONE DECREASED
  2. KYLEENA [Suspect]
     Active Substance: LEVONORGESTREL
     Indication: CONTRACEPTION
     Dosage: 17.5 ?G PER DAY CONTINUOUSLY
     Route: 015
     Dates: start: 20180212
  3. DALACIN C [CLINDAMYCIN PALMITATE HYDROCHLORIDE] [Suspect]
     Active Substance: CLINDAMYCIN PALMITATE HYDROCHLORIDE
     Dosage: 450 MG, 4 TIMES A DAY
     Dates: start: 20200201
  4. FLAGYL [Suspect]
     Active Substance: METRONIDAZOLE\METRONIDAZOLE HYDROCHLORIDE
     Dosage: 400 MG, BID
     Dates: start: 20200201
  5. AZALIA [Concomitant]
     Indication: EPILEPSY
     Dosage: UNK
     Dates: start: 20181114

REACTIONS (11)
  - Urinary tract infection [Not Recovered/Not Resolved]
  - Device use issue [None]
  - Medical device pain [Not Recovered/Not Resolved]
  - Cervicitis [Not Recovered/Not Resolved]
  - Seizure [None]
  - Cervical dysplasia [None]
  - Device breakage [Not Recovered/Not Resolved]
  - Post procedural haemorrhage [None]
  - Procedural pain [None]
  - Embedded device [Not Recovered/Not Resolved]
  - Vaginal haemorrhage [None]

NARRATIVE: CASE EVENT DATE: 2019
